FAERS Safety Report 5099687-2 (Version None)
Quarter: 2006Q3

REPORT INFORMATION
  Report Type: 
  Country: None (occurrence: None)
  Receive Date: 20060908
  Receipt Date: 20060828
  Transmission Date: 20061208
  Serious: Yes (Hospitalization)
  Sender: FDA-Public Use
  Company Number: DE-ROCHE-460892

PATIENT
  Age: 68 Year
  Sex: Female
  Weight: 76 kg

DRUGS (4)
  1. CAPECITABINE [Suspect]
     Dosage: GIVEN ON DAYS 1-14 Q DAY 22.
     Route: 048
     Dates: start: 20060815
  2. MARCUMAR [Concomitant]
  3. ENAHEXAL [Concomitant]
  4. EUTHYROX [Concomitant]

REACTIONS (2)
  - FEMUR FRACTURE [None]
  - METASTASIS [None]
